FAERS Safety Report 25797173 (Version 1)
Quarter: 2025Q3

REPORT INFORMATION
  Report Type: Spontaneous
  Country: US (occurrence: US)
  Receive Date: 20250912
  Receipt Date: 20250912
  Transmission Date: 20251020
  Serious: Yes (Hospitalization)
  Sender: AMGEN
  Company Number: US-AMGEN-USASP2025177891

PATIENT
  Age: 93 Year
  Sex: Female

DRUGS (9)
  1. REPATHA [Suspect]
     Active Substance: EVOLOCUMAB
     Indication: Product used for unknown indication
     Dosage: 140 MILLIGRAM, Q2WK
     Route: 058
     Dates: start: 2022
  2. ZINC [Concomitant]
     Active Substance: ZINC
     Indication: Skin disorder
     Dates: start: 20250702
  3. SYNTHROID [Concomitant]
     Active Substance: LEVOTHYROXINE SODIUM
     Indication: Thyroid disorder
     Route: 058
  4. METOPROLOL [Concomitant]
     Active Substance: METOPROLOL
     Indication: Cardiac disorder
     Dates: start: 2019
  5. ASPIRIN [Concomitant]
     Active Substance: ASPIRIN
     Dosage: UNK UNK, QD
  6. MUCINEX [Concomitant]
     Active Substance: GUAIFENESIN
  7. PEPCID [Concomitant]
     Active Substance: FAMOTIDINE
     Indication: Gastrooesophageal reflux disease
  8. Dulcolax [Concomitant]
     Indication: Abdominal discomfort
     Dates: start: 20250702
  9. VITAMIN D [Concomitant]
     Active Substance: VITAMIN D NOS
     Indication: Bone disorder
     Dates: start: 2019

REACTIONS (2)
  - Cerebrovascular accident [Unknown]
  - Device difficult to use [Unknown]

NARRATIVE: CASE EVENT DATE: 20250328
